FAERS Safety Report 6184030-8 (Version None)
Quarter: 2009Q2

REPORT INFORMATION
  Report Type: 
  Country: None (occurrence: None)
  Receive Date: 20090508
  Receipt Date: 20090507
  Transmission Date: 20091009
  Serious: No
  Sender: FDA-Public Use
  Company Number: US-B.I. PHARMACEUTICALS,INC./RIDGEFIELD-2009-BP-05094BP

PATIENT
  Age: 90 Year
  Sex: Male

DRUGS (6)
  1. FLOMAX [Suspect]
     Indication: POLLAKIURIA
     Dosage: .4MG
     Route: 048
     Dates: start: 20090406, end: 20090407
  2. FLOMAX [Suspect]
     Indication: NOCTURIA
  3. MIDODRINE [Concomitant]
     Indication: DIZZINESS
     Route: 048
  4. PLAVIX [Concomitant]
     Indication: ANTICOAGULANT THERAPY
     Route: 048
  5. SIMVASTATIN [Concomitant]
  6. EYE DROPS [Concomitant]
     Indication: GLAUCOMA

REACTIONS (3)
  - DIZZINESS [None]
  - DRUG INEFFECTIVE [None]
  - NAUSEA [None]
